FAERS Safety Report 4396010-3 (Version None)
Quarter: 2004Q3

REPORT INFORMATION
  Report Type: 
  Country: None (occurrence: None)
  Receive Date: 20040708
  Receipt Date: 20040701
  Transmission Date: 20050211
  Serious: Yes (Other)
  Sender: FDA-Public Use
  Company Number: US-JNJFOC-20040306272

PATIENT
  Age: 44 Year
  Sex: Female

DRUGS (2)
  1. TOPAMAX [Suspect]
     Indication: MIGRAINE PROPHYLAXIS
     Dosage: SEE IMAGE
  2. LEVOTHYROXINE SODIUM [Concomitant]

REACTIONS (1)
  - ASTHMA [None]
